FAERS Safety Report 14332131 (Version 21)
Quarter: 2018Q3

REPORT INFORMATION
  Report Type: Report from Study
  Country: US (occurrence: US)
  Receive Date: 20171228
  Receipt Date: 20180926
  Transmission Date: 20181010
  Serious: Yes (Hospitalization, Other)
  Sender: FDA-Public Use
  Company Number: US-GILEAD-2017-0312390

PATIENT
  Age: 72 Year
  Sex: Female

DRUGS (8)
  1. AMBRISENTAN [Suspect]
     Active Substance: AMBRISENTAN
     Indication: PRODUCT USED FOR UNKNOWN INDICATION
     Dosage: 10 MG, QD
     Route: 065
     Dates: start: 20171202
  2. COZAAR [Suspect]
     Active Substance: LOSARTAN POTASSIUM
     Indication: PRODUCT USED FOR UNKNOWN INDICATION
     Dosage: UNK
     Route: 065
  3. ADCIRCA [Suspect]
     Active Substance: TADALAFIL
     Indication: PRODUCT USED FOR UNKNOWN INDICATION
     Dosage: UNK
     Route: 065
  4. UPTRAVI [Suspect]
     Active Substance: SELEXIPAG
     Dosage: 1400 UG, BID
     Route: 065
     Dates: start: 20180328
  5. ASPIRIN 81 [Concomitant]
     Active Substance: ASPIRIN
  6. AMBRISENTAN [Suspect]
     Active Substance: AMBRISENTAN
     Dosage: 5 MG, QD
     Route: 065
  7. UPTRAVI [Suspect]
     Active Substance: SELEXIPAG
     Indication: PRODUCT USED FOR UNKNOWN INDICATION
     Dosage: 1000 UG, UNK
     Route: 065
     Dates: start: 20180123
  8. UPTRAVI [Suspect]
     Active Substance: SELEXIPAG
     Dosage: 1200 UG, UNK
     Route: 065

REACTIONS (39)
  - Decreased appetite [Not Recovered/Not Resolved]
  - Cardiac dysfunction [Recovering/Resolving]
  - Gastrooesophageal reflux disease [Not Recovered/Not Resolved]
  - Pulmonary hypertension [Not Recovered/Not Resolved]
  - Dyspepsia [Not Recovered/Not Resolved]
  - Retching [Not Recovered/Not Resolved]
  - Abdominal distension [Unknown]
  - Pain in extremity [Not Recovered/Not Resolved]
  - Oedema [Unknown]
  - Wrong technique in product usage process [Unknown]
  - Blood creatinine increased [Unknown]
  - Chills [Not Recovered/Not Resolved]
  - Weight increased [Unknown]
  - Blood pressure abnormal [Unknown]
  - Productive cough [Not Recovered/Not Resolved]
  - Scleroderma [Not Recovered/Not Resolved]
  - Pneumonitis [Unknown]
  - Cough [Not Recovered/Not Resolved]
  - Nausea [Not Recovered/Not Resolved]
  - Fluid retention [Recovered/Resolved]
  - Muscle spasms [Unknown]
  - Diarrhoea [Recovering/Resolving]
  - Vomiting [Recovered/Resolved]
  - Flushing [Unknown]
  - Coeliac disease [Not Recovered/Not Resolved]
  - Procedural pain [Not Recovered/Not Resolved]
  - Pruritus [Unknown]
  - Peripheral swelling [Unknown]
  - Abdominal discomfort [Unknown]
  - Back pain [Not Recovered/Not Resolved]
  - Myalgia [Not Recovered/Not Resolved]
  - Dyspnoea [Not Recovered/Not Resolved]
  - Weight decreased [Unknown]
  - Haematoma [Recovering/Resolving]
  - Chest pain [Not Recovered/Not Resolved]
  - Bronchitis [Unknown]
  - Sleep apnoea syndrome [Not Recovered/Not Resolved]
  - Headache [Unknown]
  - Anaemia [Not Recovered/Not Resolved]

NARRATIVE: CASE EVENT DATE: 20180405
